FAERS Safety Report 5248005-5 (Version None)
Quarter: 2007Q1

REPORT INFORMATION
  Report Type: 
  Country: None (occurrence: None)
  Receive Date: 20070227
  Receipt Date: 20070216
  Transmission Date: 20070707
  Serious: Yes (Hospitalization, Other)
  Sender: FDA-Public Use
  Company Number: DE-BRISTOL-MYERS SQUIBB COMPANY-13650072

PATIENT
  Age: 19 Month
  Sex: Male
  Weight: 12 kg

DRUGS (1)
  1. HYDROXYUREA [Suspect]
     Indication: ACCIDENTAL OVERDOSE
     Route: 048
     Dates: start: 20070117, end: 20070117

REACTIONS (4)
  - ACCIDENTAL OVERDOSE [None]
  - LARYNGOTRACHEITIS [None]
  - PYREXIA [None]
  - UPPER RESPIRATORY TRACT INFECTION [None]
